FAERS Safety Report 25948835 (Version 1)
Quarter: 2025Q4

REPORT INFORMATION
  Report Type: Spontaneous
  Country: US (occurrence: None)
  Receive Date: 20251021
  Receipt Date: 20251021
  Transmission Date: 20260118
  Serious: Yes (Life-Threatening, Hospitalization)
  Sender: FDA-CTU
  Company Number: None

PATIENT
  Age: 37 Year
  Sex: Male
  Weight: 90.45 kg

DRUGS (4)
  1. DEXAMETHASONE [Suspect]
     Active Substance: DEXAMETHASONE
     Indication: Pharyngitis
     Dates: start: 20251020, end: 20251020
  2. CRESTOR [Concomitant]
     Active Substance: ROSUVASTATIN CALCIUM
  3. KENALOG [Suspect]
     Active Substance: TRIAMCINOLONE ACETONIDE
  4. DEXAMETHASONE [Suspect]
     Active Substance: DEXAMETHASONE
     Indication: Pharyngitis
     Dates: start: 20251020, end: 20251020

REACTIONS (4)
  - Fall [None]
  - Blood potassium decreased [None]
  - Guillain-Barre syndrome [None]
  - Electrolyte imbalance [None]

NARRATIVE: CASE EVENT DATE: 20251020
